FAERS Safety Report 20497093 (Version 4)
Quarter: 2022Q2

REPORT INFORMATION
  Report Type: Report from Study
  Country: CN (occurrence: CN)
  Receive Date: 20220221
  Receipt Date: 20220427
  Transmission Date: 20220720
  Serious: Yes (Life-Threatening, Hospitalization)
  Sender: FDA-Public Use
  Company Number: CN-PFIZER INC-202200271692

PATIENT
  Age: 62 Year
  Sex: Female
  Weight: 47 kg

DRUGS (5)
  1. EPIRUBICIN HYDROCHLORIDE [Suspect]
     Active Substance: EPIRUBICIN HYDROCHLORIDE
     Indication: Triple negative breast cancer
     Dosage: 90 MG/M2 OR 72MG/M2 Q2W (EVERY 14 DAYS +/- 3 DAYS)
     Route: 041
     Dates: start: 20211018, end: 20211108
  2. CAMRELIZUMAB [Suspect]
     Active Substance: CAMRELIZUMAB
     Indication: Triple negative breast cancer
     Dosage: 200 MG, Q2W (EVERY 14 DAYS +/- 3 DAYS)
     Route: 041
     Dates: start: 20210701, end: 20211108
  3. CYCLOPHOSPHAMIDE [Suspect]
     Active Substance: CYCLOPHOSPHAMIDE
     Indication: Triple negative breast cancer
     Dosage: 500 MG/M2 OR 400 MG/M2, Q2W (EVERY 14 DAYS +/- 3 DAYS)
     Route: 040
     Dates: start: 20211018, end: 20211108
  4. PACLITAXEL [Concomitant]
     Active Substance: PACLITAXEL
     Indication: Triple negative breast cancer
     Dosage: 100 MG/M2, D1, D8 AND D15 (THREE-WEEK DOSING FOLLOWED BY ONE-WEEK OFF)
     Route: 041
     Dates: start: 20210701, end: 20210923
  5. CARBOPLATIN [Concomitant]
     Active Substance: CARBOPLATIN
     Indication: Triple negative breast cancer
     Dosage: AUC1.5; D1, D8, D15 (THREE WEEKS FOLLOWED BY ONE WEEK OFF)
     Route: 041
     Dates: start: 20210701, end: 20210923

REACTIONS (1)
  - Immune-mediated hypophysitis [Recovered/Resolved with Sequelae]

NARRATIVE: CASE EVENT DATE: 20220118
